FAERS Safety Report 8113020-0 (Version None)
Quarter: 2012Q1

REPORT INFORMATION
  Report Type: 
  Country: None (occurrence: None)
  Receive Date: 20120203
  Receipt Date: 20120123
  Transmission Date: 20120608
  Serious: Yes (Hospitalization)
  Sender: FDA-Public Use
  Company Number: US-ELI_LILLY_AND_COMPANY-US201106002247

PATIENT
  Sex: Female
  Weight: 63.039 kg

DRUGS (24)
  1. ZETIA [Concomitant]
  2. TRICOR [Concomitant]
  3. FORTEO [Suspect]
     Dosage: 20 UG, QD
     Route: 065
     Dates: end: 20111021
  4. STOOL SOFTENER [Concomitant]
  5. EFFIENT [Concomitant]
  6. CLONAZEPAM [Concomitant]
  7. PREDNISONE TAB [Concomitant]
  8. CRESTOR [Concomitant]
  9. LASIX [Concomitant]
  10. PLAVIX [Concomitant]
  11. FORTEO [Suspect]
     Dosage: 20 UG, QD
  12. GAVISCON [Concomitant]
  13. FORTEO [Suspect]
     Indication: OSTEOPOROSIS
     Dosage: 20 UG, QD
     Dates: start: 20110525
  14. FORTEO [Suspect]
     Dosage: 20 UG, QD
     Route: 065
  15. VITAMINS NOS [Concomitant]
  16. CYMBALTA [Concomitant]
  17. PEPCID [Concomitant]
  18. NEURONTIN [Concomitant]
  19. NEXIUM [Concomitant]
  20. FORTEO [Suspect]
     Dosage: 20 UG, QD
  21. CARAFATE [Concomitant]
  22. LOVAZA [Concomitant]
  23. METOPROLOL [Concomitant]
  24. PHENERGAN [Concomitant]

REACTIONS (23)
  - CHEST PAIN [None]
  - INFECTION [None]
  - DIZZINESS [None]
  - HEART RATE IRREGULAR [None]
  - DRY MOUTH [None]
  - ARTHRITIS [None]
  - PNEUMONIA [None]
  - CALCINOSIS [None]
  - DEHYDRATION [None]
  - HEADACHE [None]
  - URINARY TRACT INFECTION [None]
  - CONTUSION [None]
  - BALANCE DISORDER [None]
  - MYALGIA [None]
  - DYSPNOEA [None]
  - PALPITATIONS [None]
  - HEAD DISCOMFORT [None]
  - DRUG DOSE OMISSION [None]
  - DIARRHOEA [None]
  - NAUSEA [None]
  - NASOPHARYNGITIS [None]
  - TREMOR [None]
  - BONE DISORDER [None]
